FAERS Safety Report 5458589-X (Version None)
Quarter: 2007Q3

REPORT INFORMATION
  Report Type: 
  Country: None (occurrence: None)
  Receive Date: 20070919
  Receipt Date: 20070917
  Transmission Date: 20080115
  Serious: Yes (Hospitalization)
  Sender: FDA-Public Use
  Company Number: US-BRISTOL-MYERS SQUIBB COMPANY-13911821

PATIENT
  Age: 58 Year
  Sex: Male
  Weight: 75 kg

DRUGS (2)
  1. CISPLATIN [Suspect]
     Indication: SQUAMOUS CELL CARCINOMA
     Dosage: DAY 1 AND 22ND DAY, TOTAL DOSE OF 412 MG, START DATE OF FIRST COURSE 30-JUL-2007
     Route: 042
     Dates: start: 20070820
  2. RADIATION THERAPY [Suspect]
     Indication: SQUAMOUS CELL CARCINOMA
     Dosage: TOTAL DOSE 7000 CGY, NUMBER OF ELAPSED DAYS 42.
     Dates: start: 20070905

REACTIONS (3)
  - DEHYDRATION [None]
  - DYSPHAGIA [None]
  - OESOPHAGITIS [None]
